FAERS Safety Report 5899492-0 (Version None)
Quarter: 2008Q3

REPORT INFORMATION
  Report Type: 
  Country: None (occurrence: None)
  Receive Date: 20080926
  Receipt Date: 20080922
  Transmission Date: 20090109
  Serious: Yes (Other)
  Sender: FDA-Public Use
  Company Number: US-ASTRAZENECA-2008UW19731

PATIENT
  Age: 78 Year
  Sex: Female

DRUGS (15)
  1. PULMICORT RESPULES [Suspect]
     Indication: ASTHMA
     Route: 055
     Dates: start: 20050101
  2. PULMICORT RESPULES [Suspect]
     Indication: CHRONIC OBSTRUCTIVE PULMONARY DISEASE
     Route: 055
     Dates: start: 20050101
  3. SYNTHROID [Concomitant]
  4. COUMADIN [Concomitant]
  5. IPRATROPIUM BROMIDE [Concomitant]
  6. PROTONIX [Concomitant]
  7. ALBUTEROL [Concomitant]
  8. TAMOXIFEN CITRATE [Concomitant]
  9. KLOR-CON [Concomitant]
  10. LIPITOR [Concomitant]
  11. LASIX [Concomitant]
  12. FOSAMAX [Concomitant]
  13. METOPROLOL [Concomitant]
  14. DILTIAZEM HCL [Concomitant]
  15. MULTI-VITAMINS [Concomitant]

REACTIONS (2)
  - HEART VALVE REPLACEMENT [None]
  - WHEEZING [None]
